FAERS Safety Report 20670230 (Version 2)
Quarter: 2022Q2

REPORT INFORMATION
  Report Type: Report from Study
  Country: US (occurrence: US)
  Receive Date: 20220404
  Receipt Date: 20220415
  Transmission Date: 20220721
  Serious: Yes (Death, Hospitalization)
  Sender: FDA-Public Use
  Company Number: US-JNJFOC-20220363320

PATIENT
  Age: 76 Year
  Sex: Female
  Weight: 51 kg

DRUGS (1)
  1. CILTACABTAGENE AUTOLEUCEL [Suspect]
     Active Substance: CILTACABTAGENE AUTOLEUCEL
     Indication: Plasma cell myeloma
     Dosage: 0.75 X10^6 CAR-POSITIVE VIABLE T CELLS, APHERESIS NUMBER W379019000273
     Route: 042
     Dates: start: 20191022, end: 20191022

REACTIONS (1)
  - Pneumonia [Fatal]

NARRATIVE: CASE EVENT DATE: 20220318
